FAERS Safety Report 21014907 (Version 1)
Quarter: 2022Q2

REPORT INFORMATION
  Report Type: Spontaneous
  Country: US (occurrence: US)
  Receive Date: 20220628
  Receipt Date: 20220628
  Transmission Date: 20220721
  Serious: Yes (Other)
  Sender: FDA-Public Use
  Company Number: US-BRISTOL-MYERS SQUIBB COMPANY-2022-059631

PATIENT
  Age: 60 Year
  Sex: Male

DRUGS (6)
  1. POMALYST [Suspect]
     Active Substance: POMALIDOMIDE
     Indication: Plasma cell myeloma
     Dosage: 1 CAPSULE BY MOUTH DAILY FOR 21 DAYS OUT OF A 28 DAY CYCLE
     Route: 048
     Dates: start: 20220128
  2. ACYCLOVIR [Concomitant]
     Active Substance: ACYCLOVIR
  3. DARZALEX [Concomitant]
     Active Substance: DARATUMUMAB
     Dosage: 100MG/5M
  4. ELIQUIS [Concomitant]
     Active Substance: APIXABAN
  5. PROTONIX [Concomitant]
     Active Substance: PANTOPRAZOLE SODIUM
  6. ZOLOFT [Concomitant]
     Active Substance: SERTRALINE HYDROCHLORIDE

REACTIONS (2)
  - Illness [Unknown]
  - Product dose omission issue [Unknown]
